FAERS Safety Report 20382752 (Version 11)
Quarter: 2023Q2

REPORT INFORMATION
  Report Type: Other
  Country: ZA (occurrence: None)
  Receive Date: 20220127
  Receipt Date: 20230621
  Transmission Date: 20230722
  Serious: Yes (Hospitalization, Other)
  Sender: FDA-Public Use
  Company Number: ZA-ROCHE-3004399

PATIENT
  Age: 34 Year
  Sex: Female

DRUGS (3)
  1. ACTEMRA [Suspect]
     Active Substance: TOCILIZUMAB
     Indication: Rheumatoid arthritis
     Route: 058
     Dates: start: 202110
  2. ACTEMRA [Suspect]
     Active Substance: TOCILIZUMAB
     Route: 058
  3. ACTEMRA [Suspect]
     Active Substance: TOCILIZUMAB
     Route: 058

REACTIONS (18)
  - Nausea [Recovering/Resolving]
  - Vomiting [Recovering/Resolving]
  - Abdominal pain [Recovering/Resolving]
  - Ill-defined disorder [Unknown]
  - Abdominal rigidity [Unknown]
  - Myoclonus [Unknown]
  - Mesenteric artery stenosis [Unknown]
  - Seizure [Unknown]
  - Gait disturbance [Unknown]
  - Cognitive disorder [Unknown]
  - Gastritis [Unknown]
  - Headache [Recovering/Resolving]
  - Muscle spasms [Recovering/Resolving]
  - Hypophagia [Unknown]
  - Endoscopy upper gastrointestinal tract [Unknown]
  - Colonoscopy [Unknown]
  - Angiogram [Unknown]
  - Ultrasound liver [Unknown]

NARRATIVE: CASE EVENT DATE: 20220112
